FAERS Safety Report 6912325-6 (Version None)
Quarter: 2010Q3

REPORT INFORMATION
  Report Type: 
  Country: None (occurrence: None)
  Receive Date: 20100806
  Receipt Date: 20080627
  Transmission Date: 20110219
  Serious: No
  Sender: FDA-Public Use
  Company Number: US-PFIZER INC-2008022725

PATIENT
  Sex: Female
  Weight: 63.5 kg

DRUGS (1)
  1. GLUCOTROL XL [Suspect]
     Indication: TYPE 2 DIABETES MELLITUS
     Dates: start: 20080101

REACTIONS (3)
  - BLOOD GLUCOSE INCREASED [None]
  - FALL [None]
  - LIGAMENT INJURY [None]
